FAERS Safety Report 23552680 (Version 1)
Quarter: 2024Q1

REPORT INFORMATION
  Report Type: Spontaneous
  Country: US (occurrence: None)
  Receive Date: 20240221
  Receipt Date: 20240221
  Transmission Date: 20240410
  Serious: Yes (Hospitalization)
  Sender: FDA-Public Use
  Company Number: None

PATIENT
  Age: 72 Year
  Sex: Female

DRUGS (16)
  1. AMBRISENTAN [Suspect]
     Active Substance: AMBRISENTAN
     Indication: Pulmonary hypertension
     Dosage: FREQUENCY : DAILY;?
     Route: 048
     Dates: start: 20231012
  2. SILDENAFIL [Concomitant]
  3. SELEXIPAG [Concomitant]
  4. FUROSEMIDE [Concomitant]
  5. POTASSIUM CHLORIDE [Concomitant]
  6. ROSUVASTATIN [Concomitant]
     Active Substance: ROSUVASTATIN
  7. FAMOTIDINE [Concomitant]
  8. SUCRALFATE [Concomitant]
  9. HYDROXYCHLOROQUINE [Concomitant]
  10. FLUOXETINE [Concomitant]
  11. FERREX [Concomitant]
  12. VIT D2 [Concomitant]
  13. FOLIC ACID [Concomitant]
  14. MVI [Concomitant]
  15. CALCIUM CARBONATE [Concomitant]
  16. FISH OIL [Concomitant]

REACTIONS (2)
  - Clostridium difficile colitis [None]
  - Disease recurrence [None]

NARRATIVE: CASE EVENT DATE: 20240126
